FAERS Safety Report 10112373 (Version 1)
Quarter: 2014Q2

REPORT INFORMATION
  Report Type: Spontaneous
  Country: US (occurrence: US)
  Receive Date: 20140425
  Receipt Date: 20140425
  Transmission Date: 20141212
  Serious: No
  Sender: FDA-Public Use
  Company Number: US-009507513-1403USA013690

PATIENT
  Sex: 0

DRUGS (2)
  1. CLARITIN ORAL SOLUTION [Suspect]
     Indication: SNEEZING
     Dosage: UNK, QD
     Route: 048
     Dates: start: 20140325, end: 20140326
  2. CLARITIN ORAL SOLUTION [Suspect]
     Indication: RHINORRHOEA

REACTIONS (1)
  - Drug effect decreased [Unknown]
